FAERS Safety Report 10789365 (Version 2)
Quarter: 2015Q1

REPORT INFORMATION
  Report Type: Spontaneous
  Country: US (occurrence: US)
  Receive Date: 20150212
  Receipt Date: 20150318
  Transmission Date: 20150721
  Serious: Yes (Hospitalization)
  Sender: FDA-Public Use
  Company Number: US-TAKEDA-2015TUS001574

PATIENT
  Age: 66 Year
  Sex: Male
  Weight: 66.67 kg

DRUGS (8)
  1. VITAMIN D                          /00107901/ [Concomitant]
     Active Substance: ERGOCALCIFEROL
     Dosage: 2000 MG, QD
  2. TACROLIMUS. [Concomitant]
     Active Substance: TACROLIMUS
     Dosage: 0.5 UNK, BID
  3. FOSINOPRIL [Concomitant]
     Active Substance: FOSINOPRIL
     Dosage: 10 MG, BID
  4. GABAPENTIN. [Concomitant]
     Active Substance: GABAPENTIN
     Dosage: 300 UNK, TID
  5. ENTYVIO [Suspect]
     Active Substance: VEDOLIZUMAB
     Indication: COLITIS ULCERATIVE
     Dosage: 300 MG, UNK
     Route: 042
     Dates: start: 20150128
  6. URSODIOL. [Concomitant]
     Active Substance: URSODIOL
     Dosage: 300 MG, TID
  7. CIPRO                              /00697201/ [Concomitant]
     Active Substance: CIPROFLOXACIN
     Dosage: 500 UNK, BID
     Route: 048
  8. PREDNISONE. [Concomitant]
     Active Substance: PREDNISONE
     Dosage: 5 MG, QD

REACTIONS (1)
  - Rotavirus infection [Recovered/Resolved]

NARRATIVE: CASE EVENT DATE: 20150208
